FAERS Safety Report 9292713 (Version 6)
Quarter: 2013Q3

REPORT INFORMATION
  Report Type: Report from Study
  Country: US (occurrence: US)
  Receive Date: 20130516
  Receipt Date: 20130827
  Transmission Date: 20140515
  Serious: Yes (Other)
  Sender: FDA-Public Use
  Company Number: US-VERTEX PHARMACEUTICALS INC-2013-006050

PATIENT
  Age: 40 Year
  Sex: Female
  Weight: 56 kg

DRUGS (11)
  1. VX-950 (TELAPREVIR) [Suspect]
     Indication: HEPATITIS C
     Dosage: 750 MG, TID
     Route: 048
     Dates: start: 20130412, end: 20130614
  2. RIBAVIRIN [Suspect]
     Indication: HEPATITIS C
     Dosage: 1000 MG, UNK
     Route: 048
     Dates: start: 20130412
  3. RIBAVIRIN [Suspect]
     Dosage: 600 MG, UNK
     Route: 048
  4. PEGASYS [Suspect]
     Indication: HEPATITIS C
     Dosage: 180 ?G, QW
     Route: 058
     Dates: start: 20130412
  5. CIPROFLOXACIN HCL [Concomitant]
     Dosage: 500 MG, UNK
     Route: 048
     Dates: start: 20130217, end: 20130611
  6. ORTHO-TRI-CYCLEN 28 [Concomitant]
     Dosage: 35 ?G, QD
     Route: 048
     Dates: start: 20130205, end: 20130611
  7. ALLEGRA [Concomitant]
     Dosage: 180 MG, PRN
     Route: 048
     Dates: start: 20130205
  8. ORTHO TRI-CYCLEN LO [Concomitant]
     Dosage: 25 ?G, UNK
     Route: 048
     Dates: start: 20130404
  9. PHENAZOPYRIDINE HCL [Concomitant]
     Dosage: 200 MG, UNK
     Route: 048
     Dates: start: 20130217
  10. MIRALAX [Concomitant]
     Indication: IRRITABLE BOWEL SYNDROME
  11. SULFAMETHOXAZOLE [Concomitant]
     Dosage: 800-160MG
     Route: 048
     Dates: start: 20130128

REACTIONS (16)
  - Rash generalised [Not Recovered/Not Resolved]
  - Alopecia [Not Recovered/Not Resolved]
  - Dyspnoea [Not Recovered/Not Resolved]
  - Decreased appetite [Not Recovered/Not Resolved]
  - Weight decreased [Unknown]
  - Vulvovaginal burning sensation [Recovered/Resolved]
  - Oesophageal pain [Recovered/Resolved]
  - Myalgia [Not Recovered/Not Resolved]
  - Injection site erythema [Not Recovered/Not Resolved]
  - Injection site discolouration [Unknown]
  - Fatigue [Recovered/Resolved]
  - Anaemia [Recovered/Resolved]
  - Dry skin [Not Recovered/Not Resolved]
  - Nausea [Not Recovered/Not Resolved]
  - Pruritus [Not Recovered/Not Resolved]
  - Dysgeusia [Not Recovered/Not Resolved]
